FAERS Safety Report 9825714 (Version 2)
Quarter: 2014Q1

REPORT INFORMATION
  Report Type: Report from Study
  Country: ZA (occurrence: ZA)
  Receive Date: 20140117
  Receipt Date: 20140326
  Transmission Date: 20141002
  Serious: Yes (Death, Hospitalization, Other)
  Sender: FDA-Public Use
  Company Number: PHHY2014ZA004912

PATIENT
  Age: 70 Year
  Sex: Male
  Weight: 55 kg

DRUGS (5)
  1. GLIVEC [Suspect]
     Indication: GASTROINTESTINAL STROMAL TUMOUR
     Dosage: 400 MG, DAILY
     Route: 048
     Dates: start: 20131210, end: 20140112
  2. VITAMIN B C COMPLEX [Concomitant]
     Dosage: UNK UKN, UNK
     Route: 048
     Dates: start: 20140107
  3. FERROUS SULPHATE [Concomitant]
     Indication: ANAEMIA
     Dosage: 200 MG, 8 HOURLY
     Route: 048
     Dates: start: 20131210
  4. PARACETAMOL [Concomitant]
     Indication: PAIN
     Dosage: 500 MG, 6 HOURLY
     Route: 048
     Dates: start: 20131121
  5. TRAMADOL [Concomitant]
     Indication: PAIN
     Dosage: 50 MG, 6 HOURLY
     Route: 048
     Dates: start: 20131121

REACTIONS (5)
  - Death [Fatal]
  - Anaemia [Unknown]
  - Dehydration [Unknown]
  - Haemorrhage [Unknown]
  - No therapeutic response [Unknown]
